FAERS Safety Report 13334393 (Version 1)
Quarter: 2017Q1

REPORT INFORMATION
  Report Type: Spontaneous
  Country: FR (occurrence: FR)
  Receive Date: 20170314
  Receipt Date: 20170314
  Transmission Date: 20170428
  Serious: Yes (Hospitalization)
  Sender: FDA-Public Use
  Company Number: FR-TEVA-746904ROM

PATIENT
  Age: 82 Year
  Sex: Female

DRUGS (9)
  1. NOVONORM 2 MG [Concomitant]
     Dosage: 3 DOSAGE FORMS DAILY; MAINTENANCE TREATMENT
  2. RIFADINE [Concomitant]
     Active Substance: RIFAMPIN
     Indication: STAPHYLOCOCCAL INFECTION
     Dosage: 900 MILLIGRAM DAILY;
     Route: 048
     Dates: start: 200706, end: 20071114
  3. LASILIX 40 MG [Concomitant]
     Active Substance: FUROSEMIDE
     Dosage: 1 DOSAGE FORMS DAILY; MAINTENANCE TREATMENT
  4. INIPOMP 20 MG [Concomitant]
     Dosage: 1 DOSAGE FORMS DAILY; MAINTENANCE TREATMENT
  5. IMOVANE [Concomitant]
     Active Substance: ZOPICLONE
     Dosage: MAINTENANCE TREATMENT
  6. TANAKAN [Concomitant]
     Active Substance: GINKGO
     Dosage: 3 DOSAGE FORMS DAILY;
     Dates: end: 20071121
  7. MOTILIUM [Concomitant]
     Active Substance: DOMPERIDONE
     Dosage: 3 DOSAGE FORMS DAILY; MAINTENANCE TREATMENT
  8. MINOCYCLINE [Suspect]
     Active Substance: MINOCYCLINE\MINOCYCLINE HYDROCHLORIDE
     Indication: STAPHYLOCOCCAL INFECTION
     Dosage: 200 MILLIGRAM DAILY;
     Route: 048
     Dates: start: 20071017, end: 20071114
  9. XANAX 0.5 MG [Concomitant]
     Dosage: 1 DOSAGE FORMS DAILY; MAINTENANCE TREATMENT

REACTIONS (2)
  - Balance disorder [Recovered/Resolved]
  - Dizziness [Recovered/Resolved]

NARRATIVE: CASE EVENT DATE: 20071113
